FAERS Safety Report 9358180 (Version 2)
Quarter: 2013Q3

REPORT INFORMATION
  Report Type: Spontaneous
  Country: US (occurrence: US)
  Receive Date: 20130620
  Receipt Date: 20130711
  Transmission Date: 20140515
  Serious: Yes (Hospitalization)
  Sender: FDA-Public Use
  Company Number: US-PFIZER INC-2013182834

PATIENT
  Age: 63 Year
  Sex: Female
  Weight: 67.12 kg

DRUGS (7)
  1. SUTENT [Suspect]
     Indication: GASTROINTESTINAL STROMAL TUMOUR
     Dosage: 37.5 MG, 1X/DAY (DAILY)
     Dates: start: 20130516
  2. SUTENT [Suspect]
     Indication: GASTRIC SARCOMA
     Dosage: 12.5 MG, UNK
  3. SUTENT [Suspect]
     Indication: LUNG NEOPLASM MALIGNANT
     Dosage: 12.5 MG, 3X/DAY
     Route: 048
     Dates: start: 20130511
  4. SUTENT [Suspect]
     Dosage: 25 MG, 1X/DAY
     Route: 048
     Dates: start: 20130701, end: 20130703
  5. IBUPROFEN [Concomitant]
     Indication: GLAUCOMA
     Dosage: UNK
  6. MIRALAX [Concomitant]
     Dosage: UNK
  7. EXCEDRIN MIGRAINE [Concomitant]
     Dosage: UNK, AS NEEDED (PRN)

REACTIONS (24)
  - Convulsion [Unknown]
  - Concussion [Unknown]
  - Fall [Unknown]
  - Head injury [Unknown]
  - Off label use [Unknown]
  - Upper-airway cough syndrome [Unknown]
  - Rhinorrhoea [Unknown]
  - Hyperkeratosis [Unknown]
  - Pain [Unknown]
  - Cough [Unknown]
  - Oropharyngeal pain [Unknown]
  - Erythema [Unknown]
  - Pain in extremity [Unknown]
  - Dysgeusia [Unknown]
  - Diarrhoea [Unknown]
  - Oral pain [Unknown]
  - Glossodynia [Unknown]
  - Nausea [Unknown]
  - Headache [Unknown]
  - Decreased appetite [Unknown]
  - Dry skin [Unknown]
  - Disease recurrence [Unknown]
  - Gastrointestinal stromal tumour [Unknown]
  - Abdominal pain upper [Unknown]
